FAERS Safety Report 16207875 (Version 1)
Quarter: 2019Q2

REPORT INFORMATION
  Report Type: Report from Study
  Country: JP (occurrence: JP)
  Receive Date: 20190417
  Receipt Date: 20190417
  Transmission Date: 20190711
  Serious: Yes (Other)
  Sender: FDA-Public Use
  Company Number: JP-PFIZER INC-2019162064

PATIENT

DRUGS (6)
  1. FLUOROURACIL. [Suspect]
     Active Substance: FLUOROURACIL
     Dosage: 2400 MG/M2, CYCLIC (INDUCTION, 46-H INFUSION, SIX CYCLES)
  2. OXALIPLATIN. [Suspect]
     Active Substance: OXALIPLATIN
     Indication: RECTAL ADENOCARCINOMA
     Dosage: 85 MG/M2, CYCLIC (INDUCTION, SIX CYCLES)
  3. TS-1 [Suspect]
     Active Substance: GIMERACIL\OTERACIL\TEGAFUR
     Indication: RECTAL ADENOCARCINOMA
     Dosage: 80 MG/M2, DAILY (ON DAYS 1-14 AND 22-35)
     Route: 048
  4. BEVACIZUMAB. [Suspect]
     Active Substance: BEVACIZUMAB
     Indication: RECTAL ADENOCARCINOMA
     Dosage: 5 MG/KG, CYCLIC (INDUCTION, ON DAY1 SIX CYCLES)
  5. LEUCOVORIN. [Suspect]
     Active Substance: LEUCOVORIN
     Indication: RECTAL ADENOCARCINOMA
     Dosage: 200 MG/M2, CYCLIC (INDUCTION, SIX CYCLES)
  6. FLUOROURACIL. [Suspect]
     Active Substance: FLUOROURACIL
     Indication: RECTAL ADENOCARCINOMA
     Dosage: 400 MG/M2, CYCLIC (INDUCTION, SIX CYCLES BOLUS)
     Route: 040

REACTIONS (1)
  - Rectal stenosis [Unknown]
